FAERS Safety Report 9330328 (Version 2)
Quarter: 2013Q3

REPORT INFORMATION
  Report Type: Spontaneous
  Country: US (occurrence: US)
  Receive Date: 20130605
  Receipt Date: 20130703
  Transmission Date: 20140515
  Serious: Yes (Death)
  Sender: FDA-Public Use
  Company Number: US-ROCHE-1232533

PATIENT
  Sex: Male

DRUGS (1)
  1. XOLAIR [Suspect]
     Indication: ASTHMA
     Route: 058

REACTIONS (1)
  - Post procedural sepsis [Fatal]
